FAERS Safety Report 15928823 (Version 2)
Quarter: 2019Q2

REPORT INFORMATION
  Report Type: Spontaneous
  Country: US (occurrence: US)
  Receive Date: 20190206
  Receipt Date: 20190407
  Transmission Date: 20190711
  Serious: No
  Sender: FDA-Public Use
  Company Number: US-DSJP-DSU-2019-102393

PATIENT

DRUGS (8)
  1. WELCHOL [Suspect]
     Active Substance: COLESEVELAM HYDROCHLORIDE
     Dosage: 7.5 G, 3.75G, 2 PACKET BID
     Route: 048
     Dates: start: 2019
  2. QUESTRAN [Concomitant]
     Active Substance: CHOLESTYRAMINE
     Indication: BILE ACID MALABSORPTION
     Dosage: UNK
     Route: 065
  3. ENTOCORT [Concomitant]
     Active Substance: BUDESONIDE
     Indication: BILE ACID MALABSORPTION
     Route: 065
  4. WELCHOL [Suspect]
     Active Substance: COLESEVELAM HYDROCHLORIDE
     Indication: BILE ACID MALABSORPTION
     Dosage: 3750 MG, QD
     Route: 048
     Dates: start: 20190118, end: 201901
  5. VITAMIN D                          /07503901/ [Concomitant]
     Active Substance: VITAMIN D NOS
     Indication: CROHN^S DISEASE
     Dosage: UNK UNK, PRN
     Route: 065
  6. PREDNISONE. [Concomitant]
     Active Substance: PREDNISONE
     Indication: CROHN^S DISEASE
     Route: 065
  7. WELCHOL [Suspect]
     Active Substance: COLESEVELAM HYDROCHLORIDE
     Indication: BILE ACID MALABSORPTION
     Dosage: 3.75 G, 1 PACKET, QD
     Route: 048
     Dates: start: 201901, end: 2019
  8. IMODIUM [Concomitant]
     Active Substance: LOPERAMIDE HYDROCHLORIDE
     Indication: CROHN^S DISEASE
     Route: 065

REACTIONS (6)
  - Foreign body in respiratory tract [Not Recovered/Not Resolved]
  - Dysphagia [Not Recovered/Not Resolved]
  - Dyspepsia [Not Recovered/Not Resolved]
  - Rectal haemorrhage [Not Recovered/Not Resolved]
  - Off label use [Not Recovered/Not Resolved]
  - Burning sensation [Not Recovered/Not Resolved]

NARRATIVE: CASE EVENT DATE: 2019
